FAERS Safety Report 23447818 (Version 1)
Quarter: 2024Q1

REPORT INFORMATION
  Report Type: Spontaneous
  Country: US (occurrence: US)
  Receive Date: 20240126
  Receipt Date: 20240126
  Transmission Date: 20240410
  Serious: No
  Sender: FDA-Public Use
  Company Number: US-MYOVANT SCIENCES GMBH-2023MYSCI0900220

PATIENT
  Age: 35 Year
  Sex: Female

DRUGS (2)
  1. MYFEMBREE [Suspect]
     Active Substance: ESTRADIOL HEMIHYDRATE\NORETHINDRONE ACETATE\RELUGOLIX
     Indication: Uterine leiomyoma
     Dosage: 1 TAB, QD
     Route: 048
     Dates: end: 202308
  2. BIOTIN [Concomitant]
     Active Substance: BIOTIN
     Indication: Supplementation therapy
     Dosage: 10000 MICROGRAM, QD
     Route: 065

REACTIONS (5)
  - Musculoskeletal stiffness [Unknown]
  - Abdominal discomfort [Unknown]
  - Back pain [Unknown]
  - Therapy interrupted [Unknown]
  - Insurance issue [Unknown]

NARRATIVE: CASE EVENT DATE: 20230801
